FAERS Safety Report 5139631-2 (Version None)
Quarter: 2006Q4

REPORT INFORMATION
  Report Type: 
  Country: None (occurrence: None)
  Receive Date: 20061024
  Receipt Date: 20061011
  Transmission Date: 20070319
  Serious: Yes (Hospitalization)
  Sender: FDA-Public Use
  Company Number: 2006110647

PATIENT
  Age: 45 Year
  Sex: Male

DRUGS (6)
  1. SUTENT [Suspect]
     Indication: METASTATIC RENAL CELL CARCINOMA
     Dosage: 50 MG (50 MG, ONE/DAY - EVERY DAYS) ORAL
     Route: 048
     Dates: start: 20051226
  2. ESOMEPRAZOLE MAGNESIUM [Concomitant]
  3. OXYCODONE HCL [Concomitant]
  4. LEVOTHYROXINE SODIUM [Concomitant]
  5. FERROUS SULFATE TAB [Concomitant]
  6. DURAGESIC-100 [Concomitant]

REACTIONS (1)
  - PERICARDIAL EFFUSION [None]
